FAERS Safety Report 9019595 (Version 1)
Quarter: 2013Q1

REPORT INFORMATION
  Report Type: Spontaneous
  Country: US (occurrence: US)
  Receive Date: 20130118
  Receipt Date: 20130118
  Transmission Date: 20140127
  Serious: Yes (Death)
  Sender: FDA-Public Use
  Company Number: US-SHIONOGI, INC-2013000069

PATIENT
  Age: 38 Year
  Sex: Male

DRUGS (4)
  1. CLONIDINE [Suspect]
     Dosage: UNK
  2. CLONAZEPAM [Suspect]
     Dosage: UNK
  3. PROMETHAZINE [Suspect]
     Dosage: UNK
  4. MUSCLE RELAXANTS (NOS) [Suspect]
     Dosage: UNK

REACTIONS (2)
  - Cardio-respiratory arrest [Fatal]
  - Completed suicide [Fatal]
